APPROVED DRUG PRODUCT: EGATEN
Active Ingredient: TRICLABENDAZOLE
Strength: 250MG
Dosage Form/Route: TABLET;ORAL
Application: N208711 | Product #001
Applicant: NOVARTIS PHARMACEUTICALS CORP
Approved: Feb 13, 2019 | RLD: Yes | RS: Yes | Type: RX

EXCLUSIVITY:
Code: ODE-228 | Date: Feb 13, 2026